FAERS Safety Report 12717402 (Version 3)
Quarter: 2017Q4

REPORT INFORMATION
  Report Type: Spontaneous
  Country: ID (occurrence: ID)
  Receive Date: 20160906
  Receipt Date: 20171108
  Transmission Date: 20180320
  Serious: Yes (Hospitalization, Other)
  Sender: FDA-Public Use
  Company Number: ID-JNJFOC-20160902003

PATIENT
  Age: 35 Year
  Sex: Male

DRUGS (4)
  1. IFOSFAMIDE. [Suspect]
     Active Substance: IFOSFAMIDE
     Indication: RHABDOMYOSARCOMA
     Route: 065
  2. DOXORUBICIN HYDROCHLORIDE. [Suspect]
     Active Substance: DOXORUBICIN HYDROCHLORIDE
     Indication: RHABDOMYOSARCOMA
     Route: 065
  3. MESNA. [Suspect]
     Active Substance: MESNA
     Indication: RHABDOMYOSARCOMA
     Route: 065
  4. DACARBAZINE. [Suspect]
     Active Substance: DACARBAZINE
     Indication: RHABDOMYOSARCOMA
     Route: 065

REACTIONS (3)
  - Pneumothorax spontaneous [Recovered/Resolved]
  - Product use in unapproved indication [Unknown]
  - Off label use [Unknown]
